FAERS Safety Report 10262705 (Version 2)
Quarter: 2014Q2

REPORT INFORMATION
  Report Type: Report from Study
  Country: US (occurrence: US)
  Receive Date: 20140626
  Receipt Date: 20140626
  Transmission Date: 20141212
  Serious: Yes (Other)
  Sender: FDA-Public Use
  Company Number: US-MYLANLABS-2013S1012513

PATIENT
  Age: 48 Year
  Sex: Male

DRUGS (4)
  1. CLOZAPINE TABLETS [Suspect]
     Route: 048
     Dates: end: 20131118
  2. CLOZAPINE TABLETS [Suspect]
     Route: 048
     Dates: start: 20131120
  3. CLOZAPINE TABLETS [Suspect]
     Route: 048
     Dates: end: 20131118
  4. CLOZAPINE TABLETS [Suspect]
     Route: 048
     Dates: start: 20131120

REACTIONS (2)
  - Granulocytopenia [Not Recovered/Not Resolved]
  - Leukopenia [Recovered/Resolved]
